FAERS Safety Report 24449030 (Version 1)
Quarter: 2024Q4

REPORT INFORMATION
  Report Type: Spontaneous
  Country: IQ (occurrence: IQ)
  Receive Date: 20241017
  Receipt Date: 20241017
  Transmission Date: 20250115
  Serious: Yes (Other)
  Sender: ROCHE
  Company Number: IQ-ROCHE-10000102325

PATIENT
  Age: 64 Year
  Sex: Female
  Weight: 103 kg

DRUGS (4)
  1. PERJETA [Suspect]
     Active Substance: PERTUZUMAB
     Indication: Breast cancer
     Route: 042
     Dates: start: 20241001
  2. HERCEPTIN [Suspect]
     Active Substance: TRASTUZUMAB
     Indication: Breast cancer
     Route: 058
     Dates: start: 20241002
  3. CARBOPLATIN [Suspect]
     Active Substance: CARBOPLATIN
     Indication: Breast cancer
     Route: 042
     Dates: start: 20241002
  4. DOCETAXEL [Suspect]
     Active Substance: DOCETAXEL
     Indication: Breast cancer
     Route: 042
     Dates: start: 20241002

REACTIONS (4)
  - Diarrhoea [Not Recovered/Not Resolved]
  - Abdominal pain [Unknown]
  - Shock [Unknown]
  - White blood cell count decreased [Unknown]

NARRATIVE: CASE EVENT DATE: 20241005
